FAERS Safety Report 9262542 (Version 2)
Quarter: 2013Q2

REPORT INFORMATION
  Report Type: Spontaneous
  Country: DE (occurrence: DE)
  Receive Date: 20130430
  Receipt Date: 20130604
  Transmission Date: 20140414
  Serious: No
  Sender: FDA-Public Use
  Company Number: DE-ELI_LILLY_AND_COMPANY-DE201303009191

PATIENT
  Sex: Male

DRUGS (7)
  1. ZYPADHERA [Suspect]
     Indication: PSYCHOTIC DISORDER
     Dosage: 300 MG, 2/M
     Route: 030
  2. ZYPREXA [Suspect]
     Dosage: 5 MG, QD
     Route: 048
  3. AKINETON                                /AUS/ [Concomitant]
     Indication: EXTRAPYRAMIDAL DISORDER
     Dosage: 2 MG, UNK
  4. VALPROAT [Concomitant]
     Dosage: 500 MG, UNKNOWN
  5. HALDOL [Concomitant]
     Indication: HALLUCINATION
     Dosage: 5 MG, UNKNOWN
  6. PIPAMPERON [Concomitant]
     Indication: RESTLESSNESS
     Dosage: 40 MG, UNKNOWN
  7. SEROQUEL [Concomitant]
     Indication: PSYCHOTIC DISORDER
     Dosage: 200 MG, UNKNOWN

REACTIONS (2)
  - Underdose [Recovered/Resolved]
  - Prescribed overdose [Recovered/Resolved]
